FAERS Safety Report 17691177 (Version 2)
Quarter: 2020Q2

REPORT INFORMATION
  Report Type: Spontaneous
  Country: US (occurrence: US)
  Receive Date: 20200422
  Receipt Date: 20200501
  Transmission Date: 20200714
  Serious: Yes (Death)
  Sender: FDA-Public Use
  Company Number: US-GW PHARMA-202004USGW01478

PATIENT

DRUGS (3)
  1. TRILEPTAL [Concomitant]
     Active Substance: OXCARBAZEPINE
     Indication: PRODUCT USED FOR UNKNOWN INDICATION
     Dosage: UNK
     Route: 065
     Dates: end: 2020
  2. DILANTIN [Concomitant]
     Active Substance: PHENYTOIN
     Indication: PRODUCT USED FOR UNKNOWN INDICATION
     Dosage: UNK
     Route: 065
     Dates: start: 2020
  3. EPIDIOLEX [Suspect]
     Active Substance: CANNABIDIOL
     Indication: LENNOX-GASTAUT SYNDROME
     Dosage: 6.07 MG/KG, 170 MILLIGRAM, BID
     Route: 048
     Dates: start: 20181222, end: 2020

REACTIONS (7)
  - Vomiting [Fatal]
  - Acute respiratory distress syndrome [Fatal]
  - Pulmonary oedema [Fatal]
  - Pneumonia aspiration [Fatal]
  - Dysphagia [Fatal]
  - Ileus [Fatal]
  - Respiratory failure [Fatal]
